FAERS Safety Report 12488747 (Version 1)
Quarter: 2016Q2

REPORT INFORMATION
  Report Type: Spontaneous
  Country: PT (occurrence: PT)
  Receive Date: 20160622
  Receipt Date: 20160622
  Transmission Date: 20160815
  Serious: Yes (Other)
  Sender: FDA-Public Use
  Company Number: PT-PFIZER INC-3272573

PATIENT
  Age: 49 Year
  Sex: Female
  Weight: 70 kg

DRUGS (2)
  1. PACLITAXEL HOSPIRA [Suspect]
     Active Substance: PACLITAXEL
     Indication: BREAST CANCER
     Dosage: 140 MG, CYCLIC (DILUTED IN 250ML OF NACL 0.9% AND ADMINISTERED IN 1 HOUR)
     Route: 042
     Dates: start: 20160411, end: 20160411
  2. HERCEPTIN [Concomitant]
     Active Substance: TRASTUZUMAB
     Indication: BREAST NEOPLASM
     Dosage: 600 MG, CYCLIC
     Route: 058
     Dates: start: 20160411

REACTIONS (9)
  - Erythema [Recovered/Resolved]
  - Nausea [Recovered/Resolved]
  - Product use issue [Unknown]
  - Throat irritation [Recovered/Resolved]
  - Malaise [Recovered/Resolved]
  - Conjunctival hyperaemia [Recovered/Resolved]
  - Sinus tachycardia [Recovered/Resolved]
  - Eyelid oedema [Recovered/Resolved]
  - Feeling hot [Recovered/Resolved]

NARRATIVE: CASE EVENT DATE: 20160411
